FAERS Safety Report 7753967-8 (Version None)
Quarter: 2011Q3

REPORT INFORMATION
  Report Type: 
  Country: None (occurrence: None)
  Receive Date: 20110915
  Receipt Date: 20110906
  Transmission Date: 20111222
  Serious: Yes (Death, Hospitalization)
  Sender: FDA-Public Use
  Company Number: US-ACTELION-A-US2011-53485

PATIENT

DRUGS (2)
  1. TRACLEER [Suspect]
     Dosage: 5 MG, BID
     Route: 048
     Dates: start: 20110718, end: 20110721
  2. TRACLEER [Suspect]
     Indication: PULMONARY ARTERIAL HYPERTENSION
     Dosage: 10 MG, BID
     Route: 048
     Dates: start: 20110721, end: 20110803

REACTIONS (2)
  - SEPSIS [None]
  - MITRAL VALVE STENOSIS [None]
